FAERS Safety Report 10021320 (Version 1)
Quarter: 2014Q1

REPORT INFORMATION
  Report Type: Spontaneous
  Country: CA (occurrence: None)
  Receive Date: 20140318
  Receipt Date: 20140318
  Transmission Date: 20141002
  Serious: No
  Sender: FDA-Public Use
  Company Number: None

PATIENT
  Age: 25 Year
  Sex: Female
  Weight: 63.5 kg

DRUGS (1)
  1. APO-SULFATRIM [Suspect]
     Indication: URINARY TRACT INFECTION
     Dosage: 2 PILLS
     Route: 048
     Dates: start: 20140311, end: 20140316

REACTIONS (8)
  - Nausea [None]
  - Decreased appetite [None]
  - Abdominal discomfort [None]
  - Sexual inhibition [None]
  - Erythema [None]
  - Hot flush [None]
  - Sleep disorder [None]
  - Abnormal dreams [None]
